FAERS Safety Report 14308453 (Version 1)
Quarter: 2017Q4

REPORT INFORMATION
  Report Type: Spontaneous
  Country: US (occurrence: US)
  Receive Date: 20171220
  Receipt Date: 20171220
  Transmission Date: 20180321
  Serious: No
  Sender: FDA-Public Use
  Company Number: US-BAYER-2017-242682

PATIENT
  Sex: Female

DRUGS (1)
  1. STIVARGA [Suspect]
     Active Substance: REGORAFENIB
     Indication: PRODUCT USED FOR UNKNOWN INDICATION
     Dosage: UNK
     Route: 065
     Dates: start: 20171212

REACTIONS (5)
  - Foreign body in respiratory tract [Unknown]
  - Scar [Unknown]
  - Vomiting [Unknown]
  - Dysphagia [Unknown]
  - Fear [Unknown]

NARRATIVE: CASE EVENT DATE: 20171212
